FAERS Safety Report 25142026 (Version 1)
Quarter: 2025Q1

REPORT INFORMATION
  Report Type: Spontaneous
  Country: CA (occurrence: CA)
  Receive Date: 20250331
  Receipt Date: 20250331
  Transmission Date: 20250409
  Serious: Yes (Other)
  Sender: PFIZER
  Company Number: CA-PFIZER INC-202500066365

PATIENT
  Age: 58 Year
  Sex: Female

DRUGS (2)
  1. RUXIENCE [Suspect]
     Active Substance: RITUXIMAB-PVVR
     Indication: Granulomatosis with polyangiitis
     Route: 042
     Dates: start: 20241007
  2. RUXIENCE [Suspect]
     Active Substance: RITUXIMAB-PVVR
     Dates: start: 20241021

REACTIONS (5)
  - Deafness unilateral [Not Recovered/Not Resolved]
  - Nasal crusting [Not Recovered/Not Resolved]
  - Migraine [Recovered/Resolved]
  - Pain [Recovered/Resolved]
  - Off label use [Unknown]
